FAERS Safety Report 13201931 (Version 1)
Quarter: 2017Q1

REPORT INFORMATION
  Report Type: Spontaneous
  Country: US (occurrence: US)
  Receive Date: 20170208
  Receipt Date: 20170208
  Transmission Date: 20170428
  Serious: No
  Sender: FDA-Public Use
  Company Number: US-LEO PHARMA-245743

PATIENT
  Sex: Female

DRUGS (1)
  1. PICATO [Suspect]
     Active Substance: INGENOL MEBUTATE
     Indication: PRODUCT USED FOR UNKNOWN INDICATION
     Route: 061
     Dates: start: 20170130, end: 20170201

REACTIONS (5)
  - Activities of daily living impaired [Unknown]
  - Eyelid oedema [Recovering/Resolving]
  - Application site exfoliation [Not Recovered/Not Resolved]
  - Eye swelling [Recovering/Resolving]
  - Application site erythema [Not Recovered/Not Resolved]
